FAERS Safety Report 20777373 (Version 1)
Quarter: 2022Q2

REPORT INFORMATION
  Report Type: Spontaneous
  Country: JP (occurrence: JP)
  Receive Date: 20220503
  Receipt Date: 20220503
  Transmission Date: 20220721
  Serious: Yes (Other)
  Sender: FDA-Public Use
  Company Number: JP-LUPIN PHARMACEUTICALS INC.-2022-06403

PATIENT
  Age: 11 Month
  Sex: Male

DRUGS (11)
  1. PRAVASTATIN [Suspect]
     Active Substance: PRAVASTATIN
     Indication: Dyslipidaemia
     Dosage: UNK UNK, QD (1-2 MG)
     Route: 048
  2. PRAVASTATIN [Suspect]
     Active Substance: PRAVASTATIN
     Dosage: 3 MG, QD
     Route: 048
  3. PRAVASTATIN [Suspect]
     Active Substance: PRAVASTATIN
     Dosage: 4 MG, QD
     Route: 048
  4. FENOFIBRATE [Suspect]
     Active Substance: FENOFIBRATE
     Indication: Dyslipidaemia
     Dosage: 8 MG, QD
     Route: 048
  5. FENOFIBRATE [Suspect]
     Active Substance: FENOFIBRATE
     Dosage: 16 MG, QD
     Route: 048
  6. ATORVASTATIN CALCIUM [Suspect]
     Active Substance: ATORVASTATIN CALCIUM
     Indication: Dyslipidaemia
     Dosage: 2.5 MG, QD
     Route: 065
  7. ATORVASTATIN CALCIUM [Suspect]
     Active Substance: ATORVASTATIN CALCIUM
     Route: 065
  8. ATORVASTATIN CALCIUM [Suspect]
     Active Substance: ATORVASTATIN CALCIUM
     Dosage: 7.5 MG, QD
     Route: 065
  9. URSODIOL [Suspect]
     Active Substance: URSODIOL
     Indication: Dyslipidaemia
     Dosage: 80 MG, QD
     Route: 048
  10. URSODIOL [Suspect]
     Active Substance: URSODIOL
     Indication: Cholestasis
  11. Fat soluble vitamins nos [Concomitant]
     Indication: Product used for unknown indication
     Dosage: UNK
     Route: 065

REACTIONS (2)
  - Drug ineffective [Unknown]
  - Off label use [Unknown]
